FAERS Safety Report 5658973-5 (Version None)
Quarter: 2008Q1

REPORT INFORMATION
  Report Type: 
  Country: None (occurrence: None)
  Receive Date: 20080310
  Receipt Date: 20070706
  Transmission Date: 20080703
  Serious: Yes (Other)
  Sender: FDA-Public Use
  Company Number: US-BAYER-200711486BCC

PATIENT
  Sex: Female
  Weight: 54 kg

DRUGS (3)
  1. ALEVE [Suspect]
     Indication: HEADACHE
     Route: 048
  2. WATER PILL [Concomitant]
  3. THYROID TAB [Concomitant]

REACTIONS (1)
  - HAEMATOCHEZIA [None]
